FAERS Safety Report 4692369-8 (Version None)
Quarter: 2005Q2

REPORT INFORMATION
  Report Type: 
  Country: None (occurrence: None)
  Receive Date: 20050615
  Receipt Date: 20050526
  Transmission Date: 20051028
  Serious: Yes (Disabling)
  Sender: FDA-Public Use
  Company Number: JP_050506541

PATIENT
  Age: 63 Year
  Sex: Male
  Weight: 66 kg

DRUGS (13)
  1. GEMZAR [Suspect]
     Indication: PANCREATIC CARCINOMA
     Dosage: 1600 MG OTHER
     Route: 050
     Dates: start: 20050506, end: 20050506
  2. OMEPRAZON (OMEPRAZOLE RATIOPHARM) [Concomitant]
  3. NASEA (RAMOSETRON HYDROCHLORIDE) [Concomitant]
  4. DECADRON [Concomitant]
  5. LOXONIN (LOXOPROFEN SODIUM) [Concomitant]
  6. MAGNESIUM OXIDE [Concomitant]
  7. GASMOTIN (MOSAPRIDE CITRATE) [Concomitant]
  8. NOVAMIN (PROCHLORPERAZINE /00013301/) [Concomitant]
  9. PURSENNID [Concomitant]
  10. MS CONTIN [Concomitant]
  11. OPSO (MORPHINE HYDROCHLORIDE) [Concomitant]
  12. LANTUS [Concomitant]
  13. NOVORAPID (INSULIN ASPART) [Concomitant]

REACTIONS (1)
  - MACULAR DEGENERATION [None]
